FAERS Safety Report 9328267 (Version 2)
Quarter: 2013Q3

REPORT INFORMATION
  Report Type: Spontaneous
  Country: FR (occurrence: FR)
  Receive Date: 20130604
  Receipt Date: 20130708
  Transmission Date: 20140515
  Serious: Yes (Hospitalization)
  Sender: FDA-Public Use
  Company Number: FR-BRISTOL-MYERS SQUIBB COMPANY-18904391

PATIENT
  Age: 36 Year
  Sex: Male

DRUGS (10)
  1. ABILIFY TABS 15 MG [Suspect]
     Indication: SCHIZOPHRENIA
     Dosage: 1DF:1TAB?INTRPD ON 21APR13-26APR13 AND THEN REINTRODUCED ON26APR13
     Route: 048
     Dates: end: 201304
  2. CLOPIXOL [Suspect]
     Indication: SCHIZOPHRENIA
     Dosage: CLOPIXOL ACTION PROLONGE 200 MG/ML, SOLN FOR INJ ?INTRPD ON 21APR13-26APR13 AND REINTD ON 26APR13
     Route: 030
     Dates: end: 20130417
  3. LOXAPAC [Suspect]
     Indication: SCHIZOPHRENIA
     Dosage: LOXAPAC 25 MG, FILM-COATED TABLET ?1DF:1TAB?INTRPD ON 21APR13-26APR13 AND REINTRODUCED ON 26APR13
     Dates: end: 201304
  4. REVIA TABS [Concomitant]
     Dosage: REVIA50 MG,FILM-COATED SCORED TABS ?1DF:1TAB?INTRPD ON 21APR13-26APR13 AND REINTRD ON 26APR13
     Route: 048
  5. ALEPSAL [Concomitant]
     Dosage: ALEPSAL 100 MG, TABLET ?1DF;1TAB?INTRPD ON 21APR13-26APR13 AND REINTRD ON 26APR13
     Route: 048
  6. DEPAKINE CHRONO [Concomitant]
     Dosage: 2DF:2TABS?500 MG, FILM-COATED SCORED TAB ER?INTRPD ON 21APR13-26APR13 AND REINTRD ON 26APR13
     Route: 048
  7. LEPTICUR [Concomitant]
     Dosage: 1DF:1TAB?INTRPD ON 21APR13-26APR13 AND REINTRD ON 26APR13
     Route: 048
  8. SEROPLEX [Concomitant]
     Dosage: FILM-COATED SCORED TABLET?1DF:TAB?INTRPD ON 21APR13-26APR13 AND REINTRD ON 26APR13
     Route: 048
  9. TEMESTA [Concomitant]
     Dosage: SCORED TABLET ?1DF:1TAB
     Route: 048
  10. THERALENE [Concomitant]
     Dosage: FILM-COATED SCORED TABLET ?2DF:2TAB
     Route: 048

REACTIONS (2)
  - Dyskinesia [Recovered/Resolved]
  - Abnormal behaviour [Unknown]
